FAERS Safety Report 6734111-2 (Version None)
Quarter: 2010Q2

REPORT INFORMATION
  Report Type: 
  Country: None (occurrence: None)
  Receive Date: 20100520
  Receipt Date: 20100510
  Transmission Date: 20101027
  Serious: Yes (Other)
  Sender: FDA-Public Use
  Company Number: US-JNJCH-2010011506

PATIENT
  Age: 14 Year
  Sex: Female

DRUGS (1)
  1. SUDAFED PE SINUS AND ALLERGY [Suspect]
     Indication: SUICIDE ATTEMPT
     Dosage: TEXT:4 TABLETS AT ONCE
     Route: 048

REACTIONS (1)
  - SUICIDE ATTEMPT [None]
